FAERS Safety Report 8099641 (Version 3)
Quarter: 2012Q4

REPORT INFORMATION
  Report Type: 
  Country: US (occurrence: US)
  Receive Date: 20110822
  Receipt Date: 20120905
  Transmission Date: 20130627
  Serious: Yes (Hospitalization, Other)
  Sender: FDA-Public Use
  Company Number: US-ELI_LILLY_AND_COMPANY-US201104005904

PATIENT
  Age: 88 None
  Sex: Female

DRUGS (8)
  1. FORTEO [Suspect]
     Indication: OSTEOPOROSIS
     Dosage: 20 ug, qd
     Route: 065
     Dates: start: 20110120
  2. FORTEO [Suspect]
     Dosage: 20 ug, qd
  3. LIPITOR [Concomitant]
     Dosage: UNK
  4. COSOPT [Concomitant]
     Dosage: UNK
  5. ISOPTO CARBACHOL [Concomitant]
     Dosage: UNK
  6. TRAVATAN Z [Concomitant]
     Dosage: UNK
  7. CALCIUM VIT D [Concomitant]
     Dosage: UNK
  8. CENTRUM [Concomitant]
     Dosage: UNK

REACTIONS (9)
  - Eye injury [Unknown]
  - Fall [Unknown]
  - Back injury [Unknown]
  - Fall [Unknown]
  - Muscular weakness [Unknown]
  - Heart rate increased [Unknown]
  - Dizziness [Unknown]
  - Pain [Recovered/Resolved]
  - Gait disturbance [Unknown]
